FAERS Safety Report 14580164 (Version 2)
Quarter: 2018Q1

REPORT INFORMATION
  Report Type: Spontaneous
  Country: US (occurrence: US)
  Receive Date: 20180228
  Receipt Date: 20180327
  Transmission Date: 20180509
  Serious: Yes (Hospitalization, Other)
  Sender: FDA-Public Use
  Company Number: US-BRISTOL-MYERS SQUIBB COMPANY-BMS-2018-016964

PATIENT
  Age: 63 Year
  Sex: Female
  Weight: 63.8 kg

DRUGS (1)
  1. OPDIVO [Suspect]
     Active Substance: NIVOLUMAB
     Indication: NON-SMALL CELL LUNG CANCER
     Dosage: 240 MG, UNK
     Route: 042
     Dates: start: 20171027, end: 20171027

REACTIONS (6)
  - Hypophagia [Recovering/Resolving]
  - Oropharyngeal pain [Recovering/Resolving]
  - Pneumonia [Recovering/Resolving]
  - Tracheo-oesophageal fistula [Recovering/Resolving]
  - Pleural effusion [Recovering/Resolving]
  - Oesophageal pain [Recovering/Resolving]

NARRATIVE: CASE EVENT DATE: 20171029
